FAERS Safety Report 4906919-7 (Version None)
Quarter: 2006Q1

REPORT INFORMATION
  Report Type: 
  Country: None (occurrence: None)
  Receive Date: 20060113
  Receipt Date: 20050520
  Transmission Date: 20060701
  Serious: Yes (Hospitalization, Other)
  Sender: FDA-Public Use
  Company Number: HQWYE957025MAY05

PATIENT
  Age: 70 Year
  Sex: Female
  Weight: 59.02 kg

DRUGS (9)
  1. PREMPRO [Suspect]
     Indication: HORMONE REPLACEMENT THERAPY
     Dosage: .625 MG/2.5 MG, ORAL
     Route: 048
     Dates: start: 19971007
  2. OGEN [Suspect]
     Indication: MENOPAUSAL SYMPTOMS
     Dosage: .0625 MG, ORAL, .0625 MG, ORAL, .0625 MG, ORAL
     Route: 048
     Dates: start: 19930101, end: 19940101
  3. OGEN [Suspect]
     Indication: MENOPAUSAL SYMPTOMS
     Dosage: .0625 MG, ORAL, .0625 MG, ORAL, .0625 MG, ORAL
     Route: 048
     Dates: start: 19960101, end: 19970101
  4. OGEN [Suspect]
     Indication: MENOPAUSAL SYMPTOMS
     Dosage: .0625 MG, ORAL, .0625 MG, ORAL, .0625 MG, ORAL
     Route: 048
     Dates: start: 19900101
  5. PREMARIN [Suspect]
     Dosage: ORAL
     Route: 048
     Dates: start: 19910101, end: 19920101
  6. PREMARIN [Suspect]
     Dosage: ORAL
     Route: 048
     Dates: start: 19950101, end: 19960101
  7. PROVERA [Suspect]
     Dosage: 5 MG; ORAL
     Route: 048
     Dates: start: 19900101, end: 19970101
  8. NORVASC [Concomitant]
  9. HYDROCHLOROTHIAZIDE [Concomitant]

REACTIONS (1)
  - BREAST CANCER [None]
